FAERS Safety Report 18082796 (Version 3)
Quarter: 2021Q1

REPORT INFORMATION
  Report Type: Report from Study
  Country: US (occurrence: US)
  Receive Date: 20200729
  Receipt Date: 20210119
  Transmission Date: 20210419
  Serious: No
  Sender: FDA-Public Use
  Company Number: NVSC2020US207975

PATIENT
  Sex: Male

DRUGS (2)
  1. ILARIS [Suspect]
     Active Substance: CANAKINUMAB
     Indication: STILL^S DISEASE
     Dosage: 150 MG, EVERY 4 WEEKS
     Route: 058
     Dates: start: 20191001
  2. ILARIS [Suspect]
     Active Substance: CANAKINUMAB
     Dosage: 150 MG, EVERY 4 WEEKS
     Route: 058

REACTIONS (8)
  - Pain [Unknown]
  - Pain in extremity [Not Recovered/Not Resolved]
  - Arthralgia [Not Recovered/Not Resolved]
  - Peripheral swelling [Not Recovered/Not Resolved]
  - Back pain [Not Recovered/Not Resolved]
  - Exposure to communicable disease [Unknown]
  - Inappropriate schedule of product administration [Unknown]
  - Joint swelling [Recovering/Resolving]
